FAERS Safety Report 15625724 (Version 1)
Quarter: 2018Q4

REPORT INFORMATION
  Report Type: Spontaneous
  Country: US (occurrence: US)
  Receive Date: 20181116
  Receipt Date: 20181116
  Transmission Date: 20190205
  Serious: Yes (Hospitalization, Other)
  Sender: FDA-Public Use
  Company Number: US-APOTEX-2018AP024751

PATIENT
  Age: 16 Year
  Sex: Female

DRUGS (1)
  1. LITHIUM CARBONATE. [Suspect]
     Active Substance: LITHIUM CARBONATE
     Indication: BIPOLAR DISORDER
     Dosage: UNK
     Route: 065

REACTIONS (12)
  - Toxicity to various agents [Unknown]
  - Acute kidney injury [Unknown]
  - Dysarthria [Unknown]
  - Normocytic anaemia [Unknown]
  - Clonus [Unknown]
  - Muscle rigidity [Unknown]
  - Metabolic acidosis [Unknown]
  - Mental status changes [Unknown]
  - Confusional state [Unknown]
  - Encephalopathy [Unknown]
  - Condition aggravated [Unknown]
  - Ataxia [Unknown]
